FAERS Safety Report 17909545 (Version 2)
Quarter: 2020Q2

REPORT INFORMATION
  Report Type: Other
  Country: DE (occurrence: DE)
  Receive Date: 20200618
  Receipt Date: 20200618
  Transmission Date: 20200714
  Serious: Yes (Death, Life-Threatening, Hospitalization)
  Sender: FDA-Public Use
  Company Number: DE-CELLTRION INC.-2020DE023357

PATIENT

DRUGS (10)
  1. RITUXIMAB (UNKNOWN) [Suspect]
     Active Substance: RITUXIMAB
     Dosage: NK MG
  2. PREDNISOLON [PREDNISOLONE] [Suspect]
     Active Substance: PREDNISOLONE
     Dosage: NK MG
  3. COTRIM FORTE 800/160 [Concomitant]
     Dosage: 800|160 MG/2 TAG, 1-0-0-0
  4. ZOLEDRONIC ACID [Concomitant]
     Active Substance: ZOLEDRONIC ACID
     Dosage: NK MG/1X, 1-0-0-0
  5. VIGANTOLETTEN 1000I.E. [Suspect]
     Active Substance: CHOLECALCIFEROL
     Dosage: 1000 IE, 1-0-0-0
  6. IDELALISIB [Suspect]
     Active Substance: IDELALISIB
     Dosage: 150 MG, 1-0-1-0
  7. GEMCITABINE. [Suspect]
     Active Substance: GEMCITABINE
     Dosage: NK MG
  8. ENOXAPARIN [Concomitant]
     Active Substance: ENOXAPARIN
     Dosage: 40 MG, 1-0-0-0
  9. OXALIPLATIN. [Suspect]
     Active Substance: OXALIPLATIN
     Dosage: NK MG
  10. ALLOPURINOL. [Concomitant]
     Active Substance: ALLOPURINOL
     Dosage: 150 MG, 1-0-0-0

REACTIONS (10)
  - Pyrexia [Unknown]
  - Cough [Unknown]
  - Chills [Unknown]
  - Product prescribing error [Unknown]
  - Dysuria [Unknown]
  - Product administration error [Unknown]
  - General physical health deterioration [Unknown]
  - Productive cough [Unknown]
  - Death [Fatal]
  - Epistaxis [Unknown]
